FAERS Safety Report 21283935 (Version 1)
Quarter: 2022Q3

REPORT INFORMATION
  Report Type: Report from Study
  Country: US (occurrence: US)
  Receive Date: 20220901
  Receipt Date: 20220901
  Transmission Date: 20221027
  Serious: Yes (Other)
  Sender: FDA-Public Use
  Company Number: US-BRISTOL-MYERS SQUIBB COMPANY-2022-030033

PATIENT
  Age: 61 Year
  Sex: Female
  Weight: 81.646 kg

DRUGS (2)
  1. REVLIMID [Suspect]
     Active Substance: LENALIDOMIDE
     Indication: Plasma cell myeloma
     Dosage: FOR 21 DAYS 7 DAYS OFF/21 DAYS OF 28 DAYS
     Route: 048
     Dates: start: 20210712
  2. REVLIMID [Suspect]
     Active Substance: LENALIDOMIDE
     Indication: Plasma cell myeloma in remission
     Dosage: FOR 21 DAYS, 7 DAYS OFF
     Route: 048

REACTIONS (2)
  - Tooth disorder [Unknown]
  - Sinusitis [Unknown]
